FAERS Safety Report 9688422 (Version 1)
Quarter: 2013Q4

REPORT INFORMATION
  Report Type: Spontaneous
  Country: US (occurrence: None)
  Receive Date: 20131113
  Receipt Date: 20131113
  Transmission Date: 20140711
  Serious: Yes (Hospitalization)
  Sender: FDA-Public Use
  Company Number: None

PATIENT
  Age: 28 Year
  Sex: Female
  Weight: 72.1 kg

DRUGS (5)
  1. CYPROHEPTADINE [Suspect]
     Indication: MIGRAINE
     Dates: start: 20120914, end: 20121013
  2. FIORECET [Concomitant]
  3. METFORMIN [Concomitant]
  4. TRAZADONE [Concomitant]
  5. ELETRIPTAN [Concomitant]

REACTIONS (5)
  - Hepatic steatosis [None]
  - Hepatitis [None]
  - Impaired gastric emptying [None]
  - Drug-induced liver injury [None]
  - Exposure during pregnancy [None]
